FAERS Safety Report 8085500-8 (Version None)
Quarter: 2012Q1

REPORT INFORMATION
  Report Type: 
  Country: None (occurrence: None)
  Receive Date: 20120128
  Receipt Date: 20110515
  Transmission Date: 20120608
  Serious: No
  Sender: FDA-Public Use
  Company Number: US-ABBOTT-11P-163-0710109-00

PATIENT
  Sex: Female
  Weight: 76.726 kg

DRUGS (10)
  1. NORCO [Concomitant]
     Indication: PRODUCT USED FOR UNKNOWN INDICATION
  2. FERROUS SULFATE TAB [Concomitant]
     Indication: CROHN'S DISEASE
  3. DIAMOX SRC [Concomitant]
     Indication: OCULAR NEOPLASM
  4. NEXIUM [Concomitant]
     Indication: GASTROOESOPHAGEAL REFLUX DISEASE
  5. PREDNISONE TAB [Concomitant]
     Indication: CROHN'S DISEASE
  6. CORTIFOAM [Concomitant]
     Indication: PRODUCT USED FOR UNKNOWN INDICATION
  7. PENTASA [Concomitant]
     Indication: CROHN'S DISEASE
  8. HUMIRA [Suspect]
     Indication: CROHN'S DISEASE
     Route: 058
     Dates: start: 20110224, end: 20110224
  9. OMNARIS [Concomitant]
     Indication: CONTINUOUS POSITIVE AIRWAY PRESSURE
     Route: 045
  10. CYMBALTA [Concomitant]
     Indication: DEPRESSION
     Dosage: DAILY

REACTIONS (2)
  - PRURITUS GENERALISED [None]
  - CROHN'S DISEASE [None]
